FAERS Safety Report 8957696 (Version 1)
Quarter: 2012Q4

REPORT INFORMATION
  Report Type: Report from Study
  Country: US (occurrence: US)
  Receive Date: 20121210
  Receipt Date: 20121210
  Transmission Date: 20130627
  Serious: No
  Sender: FDA-Public Use
  Company Number: US-ROCHE-1161508

PATIENT
  Age: 39 Year
  Sex: Female
  Weight: 61.29 kg

DRUGS (2)
  1. RIBAVIRIN [Suspect]
     Indication: HEPATITIS
     Route: 048
     Dates: start: 20121111, end: 20121116
  2. PEG-INTERFERON ALFA 2A [Suspect]
     Indication: HEPATITIS C
     Route: 030
     Dates: start: 20121109, end: 20121116

REACTIONS (1)
  - Rash [Recovered/Resolved]
